FAERS Safety Report 6056073-6 (Version None)
Quarter: 2009Q2

REPORT INFORMATION
  Report Type: 
  Country: None (occurrence: None)
  Receive Date: 20090126
  Receipt Date: 20090112
  Transmission Date: 20091009
  Serious: Yes (Disabling)
  Sender: FDA-Public Use
  Company Number: GRP08000129

PATIENT
  Age: 70 Year
  Sex: Female

DRUGS (11)
  1. ACTONEL WITH CALCIUM (COPACKAGED) [Suspect]
     Indication: OSTEOPOROSIS
     Dosage: 35 MG, CYCLIC 1/D, ORAL
     Route: 048
     Dates: start: 20080820, end: 20081118
  2. INSULIN (INSULIN) [Concomitant]
  3. RAMIPRIL [Concomitant]
  4. THYRONAJOD (LEVOTHYROXINE SODIUM, POTASSIUM IODIDE) [Concomitant]
  5. SIMVASTATIN [Concomitant]
  6. ACETYLSALICYLIC ACID SRT [Concomitant]
  7. PRESOMEN /00073001/ (ESTROGENS CONJUGATED) [Concomitant]
  8. METOPROLOL TARTRATE [Concomitant]
  9. DEXIUM (CALCIUM DOBESILATE) [Concomitant]
  10. BUFEDIL /00641901/ (BUFLOMEDIL) [Concomitant]
  11. ASPIRIN [Concomitant]

REACTIONS (8)
  - DRY EYE [None]
  - DRY MOUTH [None]
  - EYE INFLAMMATION [None]
  - EYE IRRITATION [None]
  - NASAL DRYNESS [None]
  - NASAL INFLAMMATION [None]
  - OCULAR HYPERAEMIA [None]
  - VISUAL IMPAIRMENT [None]
